FAERS Safety Report 5431268-0 (Version None)
Quarter: 2007Q3

REPORT INFORMATION
  Report Type: 
  Country: None (occurrence: None)
  Receive Date: 20070830
  Receipt Date: 20070822
  Transmission Date: 20080115
  Serious: Yes (Life-Threatening, Hospitalization)
  Sender: FDA-Public Use
  Company Number: DE-ROCHE-512942

PATIENT
  Age: 19 Year
  Sex: Male
  Weight: 86 kg

DRUGS (2)
  1. ROACCUTAN [Suspect]
     Route: 048
     Dates: start: 20000101
  2. ROACCUTAN [Suspect]
     Route: 048
     Dates: start: 20050101, end: 20070101

REACTIONS (8)
  - AGGRESSION [None]
  - AGITATION [None]
  - DEPRESSED MOOD [None]
  - IRRITABILITY [None]
  - PANIC ATTACK [None]
  - PSYCHOTIC DISORDER [None]
  - SLEEP DISORDER [None]
  - SUICIDE ATTEMPT [None]
